FAERS Safety Report 5667793-7 (Version None)
Quarter: 2008Q1

REPORT INFORMATION
  Report Type: 
  Country: None (occurrence: None)
  Receive Date: 20080315
  Receipt Date: 20080202
  Transmission Date: 20080703
  Serious: No
  Sender: FDA-Public Use
  Company Number: US-ABBOTT-08P-163-0436225-00

PATIENT
  Sex: Male
  Weight: 65.83 kg

DRUGS (8)
  1. HUMIRA [Suspect]
     Indication: CROHN'S DISEASE
     Route: 058
     Dates: start: 20080128
  2. CODEINE SUL TAB [Concomitant]
     Indication: DIARRHOEA
     Route: 048
  3. OPIUM ALKALOIDS TOTAL [Concomitant]
     Indication: DIARRHOEA
     Route: 048
  4. MORPHINE SULFATE [Concomitant]
     Indication: BACK PAIN
     Route: 048
  5. HYDROCODONE BITARTRATE [Concomitant]
     Indication: BACK PAIN
     Route: 048
  6. FELODIPINE [Concomitant]
     Indication: DRUG USE FOR UNKNOWN INDICATION
  7. OMEPRAZOLE [Concomitant]
     Indication: DRUG USE FOR UNKNOWN INDICATION
  8. BUDESOMIDE [Concomitant]
     Indication: CROHN'S DISEASE

REACTIONS (5)
  - FATIGUE [None]
  - HEADACHE [None]
  - NAUSEA [None]
  - RHINORRHOEA [None]
  - SKIN LACERATION [None]
